FAERS Safety Report 19711999 (Version 6)
Quarter: 2021Q4

REPORT INFORMATION
  Report Type: Report from Study
  Country: FR (occurrence: FR)
  Receive Date: 20210816
  Receipt Date: 20211123
  Transmission Date: 20220303
  Serious: Yes (Death, Hospitalization, Other)
  Sender: FDA-Public Use
  Company Number: FR-002147023-NVSC2021FR167919

PATIENT

DRUGS (6)
  1. RUXOLITINIB [Suspect]
     Active Substance: RUXOLITINIB
     Indication: Primary myelofibrosis
     Dosage: 30 MG (DAILY)
     Route: 048
     Dates: start: 20200711, end: 20210401
  2. RUXOLITINIB [Suspect]
     Active Substance: RUXOLITINIB
     Dosage: 20 MG (DAILY)
     Route: 048
     Dates: start: 20210402
  3. AMLODIPINE [Concomitant]
     Active Substance: AMLODIPINE BESYLATE
     Indication: Product used for unknown indication
     Dosage: 2 DF, QD (IN MORNING)
     Route: 065
  4. EXJADE [Concomitant]
     Active Substance: DEFERASIROX
     Indication: Product used for unknown indication
     Dosage: 3 DF, QD IN EVENING
     Route: 065
  5. LEVOTHYROXINE [Concomitant]
     Active Substance: LEVOTHYROXINE
     Indication: Product used for unknown indication
     Dosage: 1 DF, QD IN  MORNING
     Route: 065
  6. BIMATOPROST\TIMOLOL [Concomitant]
     Active Substance: BIMATOPROST\TIMOLOL
     Indication: Product used for unknown indication
     Dosage: 1 DF, QD IN MORNING
     Route: 065

REACTIONS (9)
  - Asthenia [Not Recovered/Not Resolved]
  - Fatigue [Unknown]
  - Ascites [Not Recovered/Not Resolved]
  - Metabolic acidosis [Unknown]
  - Renal failure [Not Recovered/Not Resolved]
  - Peritonitis [Fatal]
  - Pneumoperitoneum [Not Recovered/Not Resolved]
  - Perforated ulcer [Recovered/Resolved with Sequelae]
  - Escherichia urinary tract infection [Recovered/Resolved]

NARRATIVE: CASE EVENT DATE: 20200901
